FAERS Safety Report 5449356-1 (Version None)
Quarter: 2007Q3

REPORT INFORMATION
  Report Type: 
  Country: None (occurrence: None)
  Receive Date: 20070907
  Receipt Date: 20070828
  Transmission Date: 20080115
  Serious: Yes (Hospitalization)
  Sender: FDA-Public Use
  Company Number: 2007JP003429

PATIENT
  Age: 64 Year
  Sex: Male
  Weight: 50 kg

DRUGS (9)
  1. FUNGUARD(MICAFUNGIN) INJECTION [Suspect]
     Indication: BRONCHOPULMONARY ASPERGILLOSIS
     Dosage: 100 MG, UID/QD, IV DRIP; 300 MG, UID/QD, IV DRIP
     Route: 041
     Dates: start: 20070613, end: 20070619
  2. FUNGUARD(MICAFUNGIN) INJECTION [Suspect]
     Indication: BRONCHOPULMONARY ASPERGILLOSIS
     Dosage: 100 MG, UID/QD, IV DRIP; 300 MG, UID/QD, IV DRIP
     Route: 041
     Dates: start: 20070620, end: 20070705
  3. FINIBAX INJECTION [Concomitant]
  4. ITRACONAZOLE [Concomitant]
  5. MEROPEN (MEROPENEM) INJECTION [Concomitant]
  6. MINOCYCLINE HCL [Concomitant]
  7. AVELOX [Concomitant]
  8. LEVOFLOXACIN [Concomitant]
  9. SOL MEDROL (METHYLPREDNISOLONE, SUCCINATE SODIUM) INJECTION [Concomitant]

REACTIONS (3)
  - EOSINOPHIL COUNT INCREASED [None]
  - LEUKOPENIA [None]
  - NEUTROPHIL COUNT DECREASED [None]
